FAERS Safety Report 9498966 (Version 2)
Quarter: 2013Q4

REPORT INFORMATION
  Report Type: Spontaneous
  Country: US (occurrence: US)
  Receive Date: 20130904
  Receipt Date: 20131101
  Transmission Date: 20140711
  Serious: Yes (Hospitalization, Other)
  Sender: FDA-Public Use
  Company Number: US-TEVA-430412USA

PATIENT
  Age: 45 Year
  Sex: Female

DRUGS (8)
  1. PACLITAXEL [Suspect]
     Indication: BREAST CANCER
     Route: 042
     Dates: end: 20130620
  2. B-COMPLEX [Concomitant]
     Dosage: ONCE DAILY
     Route: 048
  3. OMEPRAZOLE [Concomitant]
     Dosage: 20 MILLIGRAM DAILY;
     Route: 048
  4. VITAMIN D [Concomitant]
     Dosage: 50,000 UNITS WEEKLY
  5. ZANTAC [Concomitant]
     Dosage: PRN
     Route: 048
  6. DEXAMETHASONE [Concomitant]
     Dosage: 20 MG 1 DAY PRIOR TO CHEMOTHERAPY AND 20 MG MORNING OF CHEMOTHERAPY
     Route: 048
  7. ONDANSETRON ODT [Concomitant]
     Dosage: PRN
  8. COMPAZINE [Concomitant]
     Dosage: PRN

REACTIONS (5)
  - Pneumonitis [Recovered/Resolved]
  - Dyspnoea [Recovered/Resolved]
  - Cough [Recovered/Resolved]
  - Tachycardia [Recovered/Resolved]
  - Pyrexia [Recovered/Resolved]
